FAERS Safety Report 14602040 (Version 1)
Quarter: 2018Q1

REPORT INFORMATION
  Report Type: Spontaneous
  Country: US (occurrence: US)
  Receive Date: 20180306
  Receipt Date: 20180306
  Transmission Date: 20180509
  Serious: No
  Sender: FDA-Public Use
  Company Number: US-SHIRE-US201807980

PATIENT

DRUGS (2)
  1. XIIDRA [Suspect]
     Active Substance: LIFITEGRAST
     Indication: DRY EYE
     Dosage: UNK
     Route: 047
  2. ARTIFICIAL TEARS                   /00222401/ [Concomitant]
     Active Substance: PROPYLENE GLYCOL
     Indication: PRODUCT USED FOR UNKNOWN INDICATION

REACTIONS (1)
  - Instillation site pain [Unknown]
